FAERS Safety Report 8389874-X (Version None)
Quarter: 2012Q2

REPORT INFORMATION
  Report Type: 
  Country: None (occurrence: None)
  Receive Date: 20120529
  Receipt Date: 20120517
  Transmission Date: 20120825
  Serious: Yes (Other)
  Sender: FDA-Public Use
  Company Number: BR-ACCORD-013540

PATIENT
  Sex: Female
  Weight: 78.6 kg

DRUGS (11)
  1. CISPLATIN [Concomitant]
     Indication: CHEMOTHERAPY
     Route: 042
     Dates: start: 20120509, end: 20120509
  2. DEXAMETHASONE [Concomitant]
     Indication: CHEMOTHERAPY
     Route: 042
     Dates: start: 20120509, end: 20120509
  3. PACLITAXEL [Suspect]
     Indication: SQUAMOUS CELL CARCINOMA OF THE CERVIX
     Route: 042
     Dates: start: 20120307
  4. HYDROCORTISONE [Concomitant]
     Route: 042
     Dates: start: 20120509, end: 20120509
  5. CIMETIDINE [Concomitant]
     Indication: CHEMOTHERAPY
     Route: 042
     Dates: start: 20120509, end: 20120509
  6. ONDANSETRON [Concomitant]
     Indication: CHEMOTHERAPY
     Route: 042
     Dates: start: 20120509, end: 20120509
  7. CISPLATIN [Concomitant]
     Indication: SQUAMOUS CELL CARCINOMA OF THE CERVIX
     Route: 042
     Dates: start: 20120307
  8. TRANSAMINE CAP [Concomitant]
     Indication: METRORRHAGIA
     Dosage: 2 CP
     Route: 048
     Dates: start: 20120420, end: 20120425
  9. METOCLOPRAMIDE [Concomitant]
     Indication: CHEMOTHERAPY
     Route: 042
     Dates: start: 20120509, end: 20120509
  10. DEXCHLORPHENIRAMIN [Concomitant]
     Indication: CHEMOTHERAPY
     Route: 048
     Dates: start: 20120509, end: 20120509
  11. DIPHENHYDRAMINE HCL [Concomitant]
     Indication: CHEMOTHERAPY
     Route: 042
     Dates: start: 20120509, end: 20120509

REACTIONS (6)
  - HYPERTENSION [None]
  - HYPERAEMIA [None]
  - BACK PAIN [None]
  - DRY MOUTH [None]
  - RESPIRATORY DISTRESS [None]
  - ABDOMINAL PAIN [None]
